FAERS Safety Report 8351000 (Version 2)
Quarter: 2013Q1

REPORT INFORMATION
  Report Type: Spontaneous
  Country: US (occurrence: US)
  Receive Date: 20120124
  Receipt Date: 20130315
  Transmission Date: 20140127
  Serious: Yes (Other)
  Sender: FDA-Public Use
  Company Number: US-ROCHE-1032845

PATIENT
  Sex: Male
  Weight: 79.45 kg

DRUGS (1)
  1. ACCUTANE [Suspect]
     Indication: ACNE
     Route: 065
     Dates: start: 1983, end: 1987

REACTIONS (7)
  - Colitis ulcerative [Unknown]
  - Proctitis [Unknown]
  - Inflammatory bowel disease [Unknown]
  - Injury [Unknown]
  - Anxiety [Unknown]
  - Rectal polyp [Unknown]
  - Depression [Unknown]
